FAERS Safety Report 25185537 (Version 1)
Quarter: 2025Q2

REPORT INFORMATION
  Report Type: Spontaneous
  Country: US (occurrence: US)
  Receive Date: 20250410
  Receipt Date: 20250410
  Transmission Date: 20250716
  Serious: No
  Sender: HISAMITSU PHARM
  Company Number: US-HISAMITSU-2024-US-044099

PATIENT
  Age: 71 Year
  Sex: Female
  Weight: 90.72 kg

DRUGS (2)
  1. WARFARIN [Concomitant]
     Active Substance: WARFARIN
  2. SALONPAS PAIN RELIEF [Suspect]
     Active Substance: MENTHOL\METHYL SALICYLATE
     Indication: Analgesic therapy
     Route: 061
     Dates: start: 20240812, end: 20240812

REACTIONS (1)
  - Application site haematoma [Not Recovered/Not Resolved]

NARRATIVE: CASE EVENT DATE: 20240812
